FAERS Safety Report 24129551 (Version 1)
Quarter: 2024Q3

REPORT INFORMATION
  Report Type: Spontaneous
  Country: ES (occurrence: ES)
  Receive Date: 20240724
  Receipt Date: 20240724
  Transmission Date: 20241017
  Serious: Yes (Life-Threatening, Hospitalization, Other)
  Sender: GLAXOSMITHKLINE
  Company Number: None

PATIENT

DRUGS (6)
  1. VALACYCLOVIR HYDROCHLORIDE [Interacting]
     Active Substance: VALACYCLOVIR HYDROCHLORIDE
     Indication: Herpes zoster
     Dosage: 1 G, TID
     Route: 048
     Dates: start: 20240607, end: 20240612
  2. ASPIRIN [Interacting]
     Active Substance: ASPIRIN
     Indication: Prophylaxis
     Dosage: 100 MG, QD
     Route: 048
     Dates: start: 200810
  3. ENALAPRIL MALEATE [Interacting]
     Active Substance: ENALAPRIL MALEATE
     Indication: Hypertension
     Dosage: 5 MG, QD
     Route: 048
     Dates: start: 201909, end: 20240612
  4. PREGABALIN [Interacting]
     Active Substance: PREGABALIN
     Indication: Herpes zoster
     Dosage: 50 MG, QD
     Route: 048
     Dates: start: 20240607, end: 20240612
  5. DEXKETOPROFEN TROMETAMOL [Interacting]
     Active Substance: DEXKETOPROFEN TROMETAMOL
     Indication: Herpes zoster
     Dosage: 25 MG, QD
     Route: 048
     Dates: start: 20240608, end: 20240612
  6. HYDROCHLOROTHIAZIDE [Interacting]
     Active Substance: HYDROCHLOROTHIAZIDE
     Indication: Hypertension
     Dosage: 50 MG, QD
     Route: 048
     Dates: start: 201601, end: 20240612

REACTIONS (4)
  - Hyperkalaemia [Recovered/Resolved]
  - Urea renal clearance decreased [Recovered/Resolved]
  - Creatinine renal clearance decreased [Recovered/Resolved]
  - Drug interaction [Unknown]

NARRATIVE: CASE EVENT DATE: 20240610
